FAERS Safety Report 16547588 (Version 2)
Quarter: 2019Q3

REPORT INFORMATION
  Report Type: Spontaneous
  Country: PA (occurrence: PA)
  Receive Date: 20190709
  Receipt Date: 20190712
  Transmission Date: 20191004
  Serious: Yes (Death, Hospitalization)
  Sender: FDA-Public Use
  Company Number: PHHY2019CO154449

PATIENT
  Age: 65 Year
  Sex: Male

DRUGS (3)
  1. PREDNISONE. [Suspect]
     Active Substance: PREDNISONE
     Dosage: 0.25 DF, QD
     Route: 048
  2. PREDNISONE. [Suspect]
     Active Substance: PREDNISONE
     Indication: ARTHRALGIA
     Dosage: 1 DF, QD
     Route: 048
  3. PREDNISONE. [Suspect]
     Active Substance: PREDNISONE
     Dosage: 0.5 DF, QD
     Route: 048

REACTIONS (13)
  - Erythema [Fatal]
  - Blister [Fatal]
  - Skin ulcer [Fatal]
  - Conjunctival ulcer [Fatal]
  - Genital ulceration [Fatal]
  - Tachycardia [Unknown]
  - Pyrexia [Fatal]
  - Toxic epidermal necrolysis [Fatal]
  - Skin exfoliation [Fatal]
  - Pruritus generalised [Fatal]
  - Mouth ulceration [Fatal]
  - Hypertension [Unknown]
  - Skin burning sensation [Fatal]
